FAERS Safety Report 12987908 (Version 2)
Quarter: 2016Q4

REPORT INFORMATION
  Report Type: Report from Study
  Country: US (occurrence: US)
  Receive Date: 20161130
  Receipt Date: 20161216
  Transmission Date: 20170207
  Serious: No
  Sender: FDA-Public Use
  Company Number: PHEH2016US031138

PATIENT
  Sex: Female

DRUGS (1)
  1. AFINITOR [Suspect]
     Active Substance: EVEROLIMUS
     Indication: CARCINOID TUMOUR
     Route: 065

REACTIONS (5)
  - Joint injury [Unknown]
  - Fatigue [Unknown]
  - Diarrhoea [Unknown]
  - Malaise [Unknown]
  - Pigmentation disorder [Unknown]
